FAERS Safety Report 6266581-0 (Version None)
Quarter: 2009Q3

REPORT INFORMATION
  Report Type: 
  Country: None (occurrence: None)
  Receive Date: 20090713
  Receipt Date: 20090708
  Transmission Date: 20100115
  Serious: Yes (Other)
  Sender: FDA-Public Use
  Company Number: US-ALLERGAN-0909568US

PATIENT
  Age: 36 Year
  Sex: Female

DRUGS (1)
  1. ACZONE GEL 5% [Suspect]
     Indication: ACNE
     Dosage: UNK, QD
     Route: 061
     Dates: start: 20090706, end: 20090706

REACTIONS (2)
  - BACK PAIN [None]
  - NAUSEA [None]
